FAERS Safety Report 5640784-8 (Version None)
Quarter: 2008Q1

REPORT INFORMATION
  Report Type: 
  Country: None (occurrence: None)
  Receive Date: 20080227
  Receipt Date: 20080213
  Transmission Date: 20080703
  Serious: No
  Sender: FDA-Public Use
  Company Number: DE-ELI_LILLY_AND_COMPANY-DE200706003378

PATIENT
  Sex: Male
  Weight: 103.5 kg

DRUGS (2)
  1. EXENATIDE [Suspect]
     Dosage: UNK, UNK
     Dates: start: 20070410
  2. METFORMIN HCL [Suspect]
     Dosage: 1000 MG, 2/D
     Dates: start: 20070410

REACTIONS (1)
  - GASTROENTERITIS VIRAL [None]
